FAERS Safety Report 6065667-3 (Version None)
Quarter: 2009Q1

REPORT INFORMATION
  Report Type: 
  Country: None (occurrence: None)
  Receive Date: 20090130
  Receipt Date: 20090120
  Transmission Date: 20090719
  Serious: Yes (Hospitalization)
  Sender: FDA-Public Use
  Company Number: 20096134

PATIENT
  Age: 25 Year
  Sex: Male

DRUGS (4)
  1. BACLOFEN [Suspect]
     Indication: MUSCLE SPASTICITY
     Dosage: 50-200 MCG, DAILY, INTRATHECAL
     Route: 037
     Dates: start: 20070516
  2. DANTRIUM [Concomitant]
  3. SOLANAX [Concomitant]
  4. REQUIP [Concomitant]

REACTIONS (5)
  - CATHETER RELATED COMPLICATION [None]
  - CLONUS [None]
  - DEVICE CONNECTION ISSUE [None]
  - IMPLANT SITE EFFUSION [None]
  - MUSCLE SPASMS [None]
